FAERS Safety Report 13776960 (Version 1)
Quarter: 2017Q3

REPORT INFORMATION
  Report Type: Spontaneous
  Country: IT (occurrence: IT)
  Receive Date: 20170721
  Receipt Date: 20170721
  Transmission Date: 20171127
  Serious: Yes (Other)
  Sender: FDA-Public Use
  Company Number: IT-PFIZER INC-2017317188

PATIENT
  Age: 69 Year
  Sex: Male

DRUGS (2)
  1. BEVACIZUMAB. [Concomitant]
     Active Substance: BEVACIZUMAB
     Dosage: 345 MG, UNK
     Route: 042
  2. OXALIPLATIN. [Suspect]
     Active Substance: OXALIPLATIN
     Indication: COLON CANCER METASTATIC
     Dosage: 144 MG, CYCLIC
     Dates: start: 20170621

REACTIONS (5)
  - Pertussis [Unknown]
  - Throat tightness [Unknown]
  - Body temperature increased [Unknown]
  - Rash [Recovered/Resolved]
  - Abdominal pain [Recovered/Resolved]

NARRATIVE: CASE EVENT DATE: 20170621
